FAERS Safety Report 14076416 (Version 1)
Quarter: 2017Q4

REPORT INFORMATION
  Report Type: Spontaneous
  Country: US (occurrence: US)
  Receive Date: 20171011
  Receipt Date: 20171011
  Transmission Date: 20180321
  Serious: No
  Sender: FDA-Public Use
  Company Number: US-BIOGEN-2017BI00469408

PATIENT
  Sex: Female

DRUGS (1)
  1. TECFIDERA [Suspect]
     Active Substance: DIMETHYL FUMARATE
     Indication: MULTIPLE SCLEROSIS
     Route: 065
     Dates: start: 20170831

REACTIONS (7)
  - Back injury [Unknown]
  - Tenderness [Unknown]
  - Dyspepsia [Unknown]
  - Flushing [Unknown]
  - Swelling [Unknown]
  - Fall [Recovered/Resolved]
  - Pain [Unknown]
